FAERS Safety Report 9735848 (Version 1)
Quarter: 2013Q4

REPORT INFORMATION
  Report Type: Spontaneous
  Country: US (occurrence: US)
  Receive Date: 20131206
  Receipt Date: 20131206
  Transmission Date: 20140711
  Serious: No
  Sender: FDA-Public Use
  Company Number: US-GILEAD-2009-0024111

PATIENT
  Sex: Female
  Weight: 98.88 kg

DRUGS (26)
  1. LETAIRIS [Suspect]
     Indication: PULMONARY ARTERIAL HYPERTENSION
     Route: 048
     Dates: start: 20090819
  2. TRACLEER [Concomitant]
  3. ATROVENT [Concomitant]
  4. FUROSEMIDE [Concomitant]
  5. CYMBALTA [Concomitant]
  6. TRAZODONE [Concomitant]
  7. PRINIVIL [Concomitant]
  8. COREG [Concomitant]
  9. LYRICA [Concomitant]
  10. LANOXIN [Concomitant]
  11. TIZANIDINE HCL [Concomitant]
  12. SIMVASTATIN [Concomitant]
  13. METFORMIN HCL [Concomitant]
  14. ALBUTEROL [Concomitant]
  15. POTASSIUM CHLORIDE [Concomitant]
  16. MULTIVITAMIN [Concomitant]
  17. CINNAMON [Concomitant]
  18. FISH OIL [Concomitant]
  19. LORTAB [Concomitant]
  20. TYLENOL PM [Concomitant]
  21. OXYCODONE [Concomitant]
  22. LAXATIVE [Concomitant]
  23. SOY [Concomitant]
  24. PREVACID [Concomitant]
  25. ASPIRIN [Concomitant]
  26. STOOL SOFTENER [Concomitant]

REACTIONS (1)
  - Dyspnoea [Unknown]
